FAERS Safety Report 7007145-0 (Version None)
Quarter: 2010Q3

REPORT INFORMATION
  Report Type: 
  Country: None (occurrence: None)
  Receive Date: 20100922
  Receipt Date: 20100917
  Transmission Date: 20110219
  Serious: Yes (Death, Life-Threatening, Hospitalization)
  Sender: FDA-Public Use
  Company Number: FR-BRISTOL-MYERS SQUIBB COMPANY-15293004

PATIENT
  Age: 61 Year
  Sex: Female
  Weight: 85 kg

DRUGS (13)
  1. ETOPOPHOS PRESERVATIVE FREE [Suspect]
     Route: 042
     Dates: start: 20100419, end: 20100422
  2. ENDOXAN [Suspect]
     Route: 042
     Dates: start: 20100419, end: 20100422
  3. MESNA [Suspect]
     Dates: start: 20100419, end: 20100422
  4. EVOLTRA [Suspect]
     Route: 042
     Dates: start: 20100419, end: 20100422
  5. GENTAMICINE [Suspect]
     Dosage: SINGLE DOSE
     Route: 042
     Dates: start: 20100425
  6. CLAMOXYL DUO FORTE [Concomitant]
     Dosage: 1 G X 3 FROM 17APR2010 TO 19APR2010 AND 2 G X 3 FROM 20APR2010 TO 25APR2010.
     Dates: start: 20100417, end: 20100425
  7. PLITICAN [Concomitant]
     Dosage: 2 VIALS
     Dates: start: 20100421, end: 20100425
  8. ZOFRAN [Concomitant]
     Dosage: 1 VIAL
     Dates: start: 20100419, end: 20100425
  9. EMEND [Concomitant]
     Dosage: 125 MG X 2.80 MG ON 20-APR-2010.
     Dates: start: 20100419
  10. ACUPAN [Concomitant]
     Dosage: 1 VIAL
     Dates: start: 20100423, end: 20100425
  11. NOXAFIL [Concomitant]
     Dosage: 200 MG X 2.
     Dates: start: 20100423, end: 20100425
  12. TRIFLUCAN [Concomitant]
  13. SANDOSTATIN [Concomitant]
     Dates: start: 20100425

REACTIONS (2)
  - BONE MARROW FAILURE [None]
  - RENAL FAILURE ACUTE [None]
